FAERS Safety Report 21323290 (Version 1)
Quarter: 2022Q3

REPORT INFORMATION
  Report Type: Spontaneous
  Country: US (occurrence: None)
  Receive Date: 20220910
  Receipt Date: 20220910
  Transmission Date: 20221027
  Serious: No
  Sender: FDA-Public Use
  Company Number: None

PATIENT
  Sex: Male

DRUGS (1)
  1. BUPRENORPHINE [Suspect]
     Active Substance: BUPRENORPHINE
     Dosage: OTHER QUANTITY : 90 TABLET(S);?FREQUENCY : 3 TIMES A DAY;?
     Route: 060
     Dates: start: 20220714

REACTIONS (7)
  - Product substitution issue [None]
  - Suspected product quality issue [None]
  - Oral discomfort [None]
  - Tongue blistering [None]
  - Drug ineffective [None]
  - Therapeutic product effect decreased [None]
  - Product taste abnormal [None]
